FAERS Safety Report 8402834-5 (Version None)
Quarter: 2012Q2

REPORT INFORMATION
  Report Type: 
  Country: None (occurrence: None)
  Receive Date: 20120323
  Receipt Date: 20110324
  Transmission Date: 20120825
  Serious: Yes (Other)
  Sender: FDA-Public Use
  Company Number: 163-21880-11033067

PATIENT
  Age: 87 Year
  Sex: Male

DRUGS (14)
  1. FINASTERIDE [Concomitant]
  2. NAMENDA [Concomitant]
  3. LISINOPRIL [Concomitant]
  4. CALCIUM [Concomitant]
  5. REVLIMID [Suspect]
     Indication: MULTIPLE MYELOMA
     Dosage: 5 MG, 1 IN 1 D, PO
     Route: 048
     Dates: start: 20100402, end: 20110320
  6. FLUOXETINE [Concomitant]
  7. M.V.I. [Concomitant]
  8. PERCOCET [Concomitant]
  9. VITAMIN B3 (NICOTINAMIDE) [Concomitant]
  10. SINEMET [Concomitant]
  11. ARICEPT [Concomitant]
  12. ASPIRIN [Concomitant]
  13. MELOXICAM [Concomitant]
  14. SIMVASTATIN [Concomitant]

REACTIONS (2)
  - PANCYTOPENIA [None]
  - HYPERPROTEINAEMIA [None]
